FAERS Safety Report 9520198 (Version 1)
Quarter: 2013Q3

REPORT INFORMATION
  Report Type: Spontaneous
  Country: US (occurrence: US)
  Receive Date: 20130912
  Receipt Date: 20130912
  Transmission Date: 20140515
  Serious: No
  Sender: FDA-Public Use
  Company Number: US-MUTUAL PHARMACEUTICAL COMPANY, INC.-BCTM20130061

PATIENT
  Sex: Male
  Weight: 81.72 kg

DRUGS (3)
  1. BACTRIM [Suspect]
     Indication: PRODUCT USED FOR UNKNOWN INDICATION
     Route: 065
     Dates: start: 2013, end: 2013
  2. NEURONTIN [Concomitant]
     Indication: COMPLEX REGIONAL PAIN SYNDROME
     Route: 048
  3. UNSPECIFIED MEDICATION [Concomitant]
     Indication: PRODUCT USED FOR UNKNOWN INDICATION
     Route: 065

REACTIONS (3)
  - Disorientation [Recovered/Resolved]
  - Drug hypersensitivity [None]
  - Rash [Recovered/Resolved]
